FAERS Safety Report 20479601 (Version 1)
Quarter: 2022Q1

REPORT INFORMATION
  Report Type: Spontaneous
  Country: US (occurrence: None)
  Receive Date: 20220215
  Receipt Date: 20220215
  Transmission Date: 20220423
  Serious: Yes (Disabling)
  Sender: FDA-Public Use
  Company Number: None

PATIENT
  Age: 90 Year
  Sex: Female
  Weight: 99.9 kg

DRUGS (15)
  1. JANUVIA [Suspect]
     Active Substance: SITAGLIPTIN PHOSPHATE
     Indication: Diabetes mellitus
     Dosage: OTHER QUANTITY : 1 TABLET(S);?FREQUENCY : DAILY;?
     Route: 048
     Dates: start: 20210901, end: 20211231
  2. ALPRAZOLAM [Concomitant]
     Active Substance: ALPRAZOLAM
  3. OLMESARTAN [Concomitant]
     Active Substance: OLMESARTAN
  4. PRILOSEC [Concomitant]
     Active Substance: OMEPRAZOLE MAGNESIUM
  5. PREDNISONE [Concomitant]
     Active Substance: PREDNISONE
  6. ALLOPURINOL [Concomitant]
     Active Substance: ALLOPURINOL
  7. ATENOLOL [Concomitant]
     Active Substance: ATENOLOL
  8. ATORVASTATIN [Concomitant]
     Active Substance: ATORVASTATIN
  9. FLEXERIL [Concomitant]
     Active Substance: CYCLOBENZAPRINE HYDROCHLORIDE
  10. DILTIAZEM [Concomitant]
  11. TESSALON [Concomitant]
     Active Substance: BENZONATATE
  12. Perles [Concomitant]
  13. VITAMIN D [Concomitant]
     Active Substance: VITAMIN D NOS
  14. ASPIRIN [Concomitant]
     Active Substance: ASPIRIN
  15. IRON [Concomitant]
     Active Substance: IRON

REACTIONS (1)
  - Pancreatic mass [None]

NARRATIVE: CASE EVENT DATE: 20220125
